FAERS Safety Report 26044893 (Version 1)
Quarter: 2025Q4

REPORT INFORMATION
  Report Type: Report from Study
  Country: PK (occurrence: PK)
  Receive Date: 20251114
  Receipt Date: 20251114
  Transmission Date: 20260118
  Serious: Yes (Death)
  Sender: ROCHE
  Company Number: PK-ROCHE-10000394284

PATIENT
  Age: 72 Year
  Sex: Female

DRUGS (2)
  1. AVASTIN [Suspect]
     Active Substance: BEVACIZUMAB
     Indication: Hepatocellular carcinoma
     Route: 042
     Dates: start: 20250626
  2. TECENTRIQ [Suspect]
     Active Substance: ATEZOLIZUMAB
     Indication: Hepatocellular carcinoma
     Route: 042
     Dates: start: 20250626

REACTIONS (6)
  - Vomiting [Unknown]
  - Fatigue [Unknown]
  - Hypophagia [Unknown]
  - Pruritus [Unknown]
  - Full blood count abnormal [Fatal]
  - Blood test abnormal [Fatal]

NARRATIVE: CASE EVENT DATE: 20250915
